FAERS Safety Report 15449176 (Version 2)
Quarter: 2019Q1

REPORT INFORMATION
  Report Type: Report from Study
  Country: None (occurrence: BR)
  Receive Date: 20180930
  Receipt Date: 20190126
  Transmission Date: 20190417
  Serious: Yes (Other)
  Sender: FDA-Public Use
  Company Number: BR-ABBVIE-18K-020-2501545-00

PATIENT
  Age: 56 Year
  Sex: Male
  Weight: 83 kg

DRUGS (4)
  1. HUMIRA [Suspect]
     Active Substance: ADALIMUMAB
     Route: 058
  2. HUMIRA [Suspect]
     Active Substance: ADALIMUMAB
     Dosage: LOADING DOSE, WEEK 1
     Route: 058
     Dates: start: 20160919, end: 20160919
  3. AZATHIOPRINE. [Concomitant]
     Active Substance: AZATHIOPRINE
     Indication: CROHN^S DISEASE
     Dates: end: 201809
  4. HUMIRA [Suspect]
     Active Substance: ADALIMUMAB
     Indication: CROHN^S DISEASE
     Dosage: WEEK 0
     Route: 058
     Dates: start: 20160912, end: 20160912

REACTIONS (9)
  - Anxiety [Unknown]
  - Myocardial infarction [Recovered/Resolved]
  - Venous occlusion [Recovered/Resolved]
  - Fistula discharge [Recovered/Resolved]
  - Skin papilloma [Recovered/Resolved]
  - Discomfort [Recovered/Resolved]
  - Pain [Recovered/Resolved]
  - Haemorrhage [Recovered/Resolved]
  - Anal fistula [Unknown]

NARRATIVE: CASE EVENT DATE: 201809
